FAERS Safety Report 7344491-5 (Version None)
Quarter: 2011Q1

REPORT INFORMATION
  Report Type: 
  Country: None (occurrence: None)
  Receive Date: 20110310
  Receipt Date: 20110223
  Transmission Date: 20110831
  Serious: Yes (Hospitalization, Other)
  Sender: FDA-Public Use
  Company Number: US-BAYER-201038246NA

PATIENT
  Sex: Female
  Weight: 94.331 kg

DRUGS (22)
  1. FLUOXETINE [Concomitant]
     Dosage: 20 MG, UNK
     Route: 048
  2. AZITHROMYCIN [Concomitant]
     Dosage: UNK
     Route: 048
     Dates: start: 20070809
  3. YAZ [Suspect]
     Indication: ACNE
     Dosage: UNK
     Dates: start: 20070222, end: 20071010
  4. YASMIN [Suspect]
     Indication: CONTRACEPTION
  5. METHADONE HCL [Concomitant]
     Indication: PAIN
     Dosage: 10 MG, UNK
     Route: 048
     Dates: start: 20070816
  6. VITAMIN D [Concomitant]
     Dosage: 1.25 MG, UNK
     Route: 048
     Dates: start: 20071018
  7. ACIPHEX [Concomitant]
     Indication: PEPTIC ULCER
  8. LORAZEPAM [Concomitant]
     Indication: ANXIETY
     Dosage: 2 MG, BID
     Route: 048
  9. HYDROCODONE BITARTRATE AND ACETAMINOPHEN [Concomitant]
     Dosage: 500 MG, QD
     Route: 048
  10. MUPIROCIN [Concomitant]
     Dosage: UNK
     Route: 061
     Dates: start: 20070525
  11. LEVOXYL [Concomitant]
     Indication: HYPOTHYROIDISM
     Dosage: 75 ?G, QD
     Route: 048
  12. ACIPHEX [Concomitant]
     Indication: GASTROOESOPHAGEAL REFLUX DISEASE
     Dosage: 20 MG, BID
     Route: 048
  13. YAZ [Suspect]
     Indication: CONTRACEPTION
  14. OXYCODONE HYDROCHLORIDE [Concomitant]
     Indication: PAIN
     Dosage: 10 MG, BID
     Route: 048
     Dates: start: 20070918
  15. YASMIN [Suspect]
     Indication: ACNE
     Dosage: UNK
     Dates: start: 20070222, end: 20071010
  16. CHERATUSSIN AC [Concomitant]
     Dosage: UNK
     Route: 048
     Dates: start: 20070809
  17. OXYCODONE HCL AND ACETAMINOPHEN [Concomitant]
     Indication: PAIN
     Dosage: UNK
     Dates: start: 20070820
  18. TOPAMAX [Concomitant]
     Indication: PAIN
     Dosage: 25 MG, QD
     Route: 048
     Dates: start: 20071017
  19. VITAMIN D [Concomitant]
     Dosage: 50000 U, UNK
  20. VICODIN [Concomitant]
     Dosage: 5/500, PRN
  21. HYDROCODONE BITARTRATE AND ACETAMINOPHEN [Concomitant]
     Indication: PAIN
     Dosage: 5 MG, QD
  22. CALCIUM [Concomitant]
     Route: 048

REACTIONS (9)
  - CHOLELITHIASIS [None]
  - GALLBLADDER CHOLESTEROLOSIS [None]
  - MALLORY-WEISS SYNDROME [None]
  - CHOLECYSTITIS [None]
  - PAIN [None]
  - GALLBLADDER DISORDER [None]
  - CHOLECYSTITIS CHRONIC [None]
  - UPPER GASTROINTESTINAL HAEMORRHAGE [None]
  - ABDOMINAL PAIN [None]
